FAERS Safety Report 8102737-X (Version None)
Quarter: 2012Q1

REPORT INFORMATION
  Report Type: 
  Country: None (occurrence: None)
  Receive Date: 20120201
  Receipt Date: 20120123
  Transmission Date: 20120608
  Serious: Yes (Other)
  Sender: FDA-Public Use
  Company Number: US-BAYER-2011-027798

PATIENT
  Age: 29 Year
  Sex: Female
  Weight: 121.4 kg

DRUGS (4)
  1. IBUPROFEN (ADVIL) [Concomitant]
     Route: 048
  2. YASMIN [Suspect]
     Dosage: UNK
     Dates: start: 20000101, end: 20050101
  3. EFFEXOR [Concomitant]
     Dosage: 225 MG, UNK
     Route: 048
  4. YAZ [Suspect]
     Dosage: UNK
     Dates: start: 20000101, end: 20050101

REACTIONS (8)
  - CHOLECYSTITIS [None]
  - ANXIETY [None]
  - PAIN [None]
  - CHOLECYSTECTOMY [None]
  - INJURY [None]
  - GENERAL PHYSICAL HEALTH DETERIORATION [None]
  - ANHEDONIA [None]
  - EMOTIONAL DISTRESS [None]
